FAERS Safety Report 12216569 (Version 1)
Quarter: 2016Q1

REPORT INFORMATION
  Report Type: Spontaneous
  Country: US (occurrence: US)
  Receive Date: 20160329
  Receipt Date: 20160329
  Transmission Date: 20160526
  Serious: No
  Sender: FDA-Public Use
  Company Number: US-BAYER-2016-052768

PATIENT
  Age: 65 Year
  Sex: Male
  Weight: 88.43 kg

DRUGS (1)
  1. MIRALAX [Suspect]
     Active Substance: POLYETHYLENE GLYCOL 3350
     Indication: CONSTIPATION
     Dosage: 1 DOSE TO 3/4 DOSE AND THEN 1/2 DOSE AND FINALLY 1/4 DOSE, QD
     Route: 048
     Dates: start: 201404, end: 20160313

REACTIONS (6)
  - Nausea [Recovered/Resolved]
  - Product use issue [None]
  - Abdominal discomfort [Recovered/Resolved]
  - Flatulence [Recovered/Resolved]
  - Muscle spasms [Recovered/Resolved]
  - Product use issue [None]

NARRATIVE: CASE EVENT DATE: 201404
